FAERS Safety Report 7992456-2 (Version None)
Quarter: 2011Q4

REPORT INFORMATION
  Report Type: 
  Country: None (occurrence: None)
  Receive Date: 20111219
  Receipt Date: 20111214
  Transmission Date: 20120403
  Serious: Yes (Hospitalization)
  Sender: FDA-Public Use
  Company Number: PHHY2011CA96414

PATIENT
  Sex: Female

DRUGS (4)
  1. ENBREL [Concomitant]
     Dosage: 50 MG, UNK
  2. ZOLEDRONOC ACID [Suspect]
     Indication: OSTEOPOROSIS
     Route: 042
     Dates: start: 20080723
  3. ZOLEDRONOC ACID [Suspect]
     Route: 042
     Dates: start: 20090714
  4. ZOLEDRONOC ACID [Suspect]
     Route: 042
     Dates: start: 20110120

REACTIONS (4)
  - ABDOMINAL HERNIA [None]
  - CHEST PAIN [None]
  - MUSCULOSKELETAL STIFFNESS [None]
  - GASTROOESOPHAGEAL REFLUX DISEASE [None]
